FAERS Safety Report 7647403-X (Version None)
Quarter: 2011Q3

REPORT INFORMATION
  Report Type: 
  Country: None (occurrence: None)
  Receive Date: 20110726
  Receipt Date: 20110711
  Transmission Date: 20111222
  Serious: Yes (Life-Threatening)
  Sender: FDA-Public Use
  Company Number: DSA_47226_2011

PATIENT
  Age: 74 Year
  Sex: Male

DRUGS (7)
  1. METFORMIN HCL [Concomitant]
  2. GLYBURIDE [Concomitant]
  3. CANDESARTAN CILEXETIL [Concomitant]
  4. FUROSEMIDE [Concomitant]
  5. SOTALOL HCL [Suspect]
     Indication: PRODUCT USED FOR UNKNOWN INDICATION
     Dosage: 240 MG BID, ORAL
     Route: 048
     Dates: end: 20110523
  6. DILTIAZEM HCL [Suspect]
     Indication: HYPERTENSION
     Dosage: 240 MG, BID, ORAL
     Route: 048
     Dates: end: 20110523
  7. NEURONTIN [Concomitant]

REACTIONS (11)
  - CARDIAC ARREST [None]
  - METABOLIC ACIDOSIS [None]
  - VENTRICULAR FIBRILLATION [None]
  - HYPOTENSION [None]
  - BRADYCARDIA [None]
  - ARRHYTHMIA [None]
  - DIABETIC KETOACIDOSIS [None]
  - BUNDLE BRANCH BLOCK RIGHT [None]
  - HYPERKALAEMIA [None]
  - BLOOD PRESSURE INCREASED [None]
  - ELECTROCARDIOGRAM QT PROLONGED [None]
